FAERS Safety Report 8879187 (Version 1)
Quarter: 2012Q4

REPORT INFORMATION
  Report Type: Spontaneous
  Country: GB (occurrence: None)
  Receive Date: 20121026
  Receipt Date: 20121026
  Transmission Date: 20130627
  Serious: Yes (Death)
  Sender: FDA-Public Use
  Company Number: DSA_60303_2012

PATIENT

DRUGS (8)
  1. FLUOROURACIL [Suspect]
     Indication: ANAL CANCER
     Route: 042
  2. MITOMYCIN [Suspect]
     Route: 040
  3. MITOMYCIN [Suspect]
     Route: 042
  4. CISPLATIN [Suspect]
     Indication: ANAL CANCER
     Route: 042
  5. THERAPEUTIC RADIOPHARMACEUTICALS [Suspect]
  6. THERAPEUTIC RADIOPHARMACEUTICALS [Suspect]
  7. THERAPEUTIC RADIOPHARMACEUTICALS [Suspect]
  8. CIPROFLOXACIN [Concomitant]

REACTIONS (1)
  - Sepsis [None]
